FAERS Safety Report 8246841-4 (Version None)
Quarter: 2012Q1

REPORT INFORMATION
  Report Type: 
  Country: None (occurrence: None)
  Receive Date: 20120330
  Receipt Date: 20120326
  Transmission Date: 20120608
  Serious: Yes (Other)
  Sender: FDA-Public Use
  Company Number: US-PFIZER INC-2012056050

PATIENT
  Sex: Male
  Weight: 74.83 kg

DRUGS (2)
  1. CHANTIX [Suspect]
     Dosage: 0.5 MG, UNK
     Route: 048
     Dates: end: 20111003
  2. CHANTIX [Suspect]
     Indication: SMOKING CESSATION THERAPY
     Dosage: 0.5 MG, 1X/DAY
     Route: 048
     Dates: start: 20110101

REACTIONS (3)
  - SUICIDAL IDEATION [None]
  - AGGRESSION [None]
  - PSYCHOTIC DISORDER [None]
